FAERS Safety Report 12101664 (Version 2)
Quarter: 2016Q1

REPORT INFORMATION
  Report Type: Report from Study
  Country: ES (occurrence: ES)
  Receive Date: 20160222
  Receipt Date: 20160331
  Transmission Date: 20160526
  Serious: Yes (Hospitalization)
  Sender: FDA-Public Use
  Company Number: ES-ROCHE-1714562

PATIENT
  Age: 78 Year
  Sex: Male
  Weight: 97.9 kg

DRUGS (12)
  1. COBIMETINIB [Suspect]
     Active Substance: COBIMETINIB
     Indication: MALIGNANT MELANOMA
     Dosage: DATE OF THE MOST RECENT DOSE PRIOR TO THE EVENT ONSET: 07FEB/2016
     Route: 048
     Dates: start: 20160128, end: 20160208
  2. ATORVASTATIN [Concomitant]
     Active Substance: ATORVASTATIN
     Route: 065
  3. NOLOTIL [Concomitant]
     Active Substance: METAMIZOLE
     Route: 065
  4. TAMSULOSINA [Concomitant]
     Active Substance: TAMSULOSIN HYDROCHLORIDE
     Route: 065
  5. PANTOPRAZOLE [Concomitant]
     Active Substance: PANTOPRAZOLE SODIUM
     Route: 065
  6. BISOPROLOL [Concomitant]
     Active Substance: BISOPROLOL
     Route: 065
  7. XARELTO [Concomitant]
     Active Substance: RIVAROXABAN
     Route: 065
  8. COBIMETINIB [Suspect]
     Active Substance: COBIMETINIB
     Route: 048
     Dates: start: 20160213
  9. SEGURIL [Concomitant]
     Active Substance: FUROSEMIDE
     Route: 065
  10. VEMURAFENIB [Suspect]
     Active Substance: VEMURAFENIB
     Indication: MALIGNANT MELANOMA
     Dosage: DATE OF THE MOST RECENT DOSE PRIOR TO THE EVENT ONSET: 07FEB/2016
     Route: 048
     Dates: start: 20160128, end: 20160208
  11. VEMURAFENIB [Suspect]
     Active Substance: VEMURAFENIB
     Route: 048
     Dates: start: 20160213
  12. DIGOXINA [Concomitant]
     Active Substance: DIGOXIN
     Route: 065

REACTIONS (1)
  - Oesophagitis [Recovered/Resolved]

NARRATIVE: CASE EVENT DATE: 20160208
